FAERS Safety Report 12934802 (Version 1)
Quarter: 2016Q4

REPORT INFORMATION
  Report Type: Other
  Country: US (occurrence: US)
  Receive Date: 20161112
  Receipt Date: 20161112
  Transmission Date: 20170207
  Serious: Yes (Other)
  Sender: FDA-Public Use
  Company Number: US-JUBILANT GENERICS LIMITED-1059477

PATIENT
  Age: 15 Year
  Sex: Male

DRUGS (4)
  1. DEXMEDETOMIDINE. [Concomitant]
     Active Substance: DEXMEDETOMIDINE
  2. FENTANYL. [Concomitant]
     Active Substance: FENTANYL
  3. OLANZAPINE. [Suspect]
     Active Substance: OLANZAPINE
  4. MIDAZOLAM [Concomitant]
     Active Substance: MIDAZOLAM\MIDAZOLAM HYDROCHLORIDE

REACTIONS (1)
  - Electrocardiogram QT prolonged [Recovered/Resolved]

NARRATIVE: CASE EVENT DATE: 20161031
